FAERS Safety Report 7775025-9 (Version None)
Quarter: 2011Q3

REPORT INFORMATION
  Report Type: 
  Country: None (occurrence: None)
  Receive Date: 20110923
  Receipt Date: 20110919
  Transmission Date: 20111222
  Serious: Yes (Disabling, Other)
  Sender: FDA-Public Use
  Company Number: IL-ROCHE-803223

PATIENT
  Age: 65 Year
  Sex: Male

DRUGS (5)
  1. TEMOZOLOMIDE [Concomitant]
     Dosage: 150 MG/M2/DAY FOR 5DAYS AT 1ST CYCLE WITH ESCALATION TO 200 MG/M2/DAY IN FURTHER CYCLES EVERY 28DAY
     Dates: start: 20070901
  2. TEMOZOLOMIDE [Concomitant]
     Indication: GLIOBLASTOMA MULTIFORME
     Dates: start: 20070801
  3. PROCARBAZINE HYDROCHLORIDE [Concomitant]
     Dosage: ON ON DAYS 8-21
     Dates: start: 20090701
  4. AVASTIN [Suspect]
     Indication: GLIOBLASTOMA
     Route: 065
     Dates: start: 20100701, end: 20110901
  5. CCNU [Concomitant]
     Dates: start: 20090701

REACTIONS (8)
  - DEEP VEIN THROMBOSIS [None]
  - VISUAL IMPAIRMENT [None]
  - GENERAL PHYSICAL HEALTH DETERIORATION [None]
  - NEOPLASM MALIGNANT [None]
  - PARKINSON'S DISEASE [None]
  - SPEECH DISORDER [None]
  - ASTHENIA [None]
  - PROTEINURIA [None]
